FAERS Safety Report 6348613-4 (Version None)
Quarter: 2009Q3

REPORT INFORMATION
  Report Type: 
  Country: None (occurrence: None)
  Receive Date: 20090911
  Receipt Date: 20070806
  Transmission Date: 20100115
  Serious: Yes (Hospitalization, Other)
  Sender: FDA-Public Use
  Company Number: US-ASTRAZENECA-2007UW02051

PATIENT
  Age: 39 Year
  Sex: Male
  Weight: 128.4 kg

DRUGS (8)
  1. SEROQUEL [Suspect]
     Indication: DEPRESSION
     Route: 048
     Dates: start: 19990101, end: 20060101
  2. SEROQUEL [Suspect]
     Indication: INSOMNIA
     Route: 048
     Dates: start: 19990101, end: 20060101
  3. SEROQUEL [Suspect]
     Dosage: 25-100 MG
     Route: 048
     Dates: start: 20021217, end: 20040713
  4. SEROQUEL [Suspect]
     Dosage: 25-100 MG
     Route: 048
     Dates: start: 20021217, end: 20040713
  5. CLOZARIL [Concomitant]
  6. RISPERDAL [Concomitant]
     Dates: start: 20000101, end: 20020101
  7. ZYPREXA /SYMBYAX /OLANZAPINE [Concomitant]
     Dates: start: 20000801
  8. ZOCOR [Concomitant]
     Route: 048
     Dates: start: 20040526

REACTIONS (11)
  - ABNORMAL WEIGHT GAIN [None]
  - BLOOD CHOLESTEROL INCREASED [None]
  - BLOOD GLUCOSE INCREASED [None]
  - DIABETIC BULLOSIS [None]
  - FURUNCLE [None]
  - NAUSEA [None]
  - NEUROPATHY PERIPHERAL [None]
  - PANCREATITIS [None]
  - TYPE 1 DIABETES MELLITUS [None]
  - TYPE 2 DIABETES MELLITUS [None]
  - VOMITING [None]
